FAERS Safety Report 23827220 (Version 1)
Quarter: 2024Q2

REPORT INFORMATION
  Report Type: Spontaneous
  Country: US (occurrence: US)
  Receive Date: 20240507
  Receipt Date: 20240507
  Transmission Date: 20240716
  Serious: No
  Sender: FDA-Public Use
  Company Number: US-TEVA-VS-3186741

PATIENT
  Age: 67 Year
  Sex: Female

DRUGS (1)
  1. PIMECROLIMUS [Suspect]
     Active Substance: PIMECROLIMUS
     Indication: Rash
     Route: 065

REACTIONS (4)
  - Tongue blistering [Unknown]
  - Gingival blister [Unknown]
  - Oral mucosal blistering [Unknown]
  - Pain [Unknown]
